FAERS Safety Report 6832860-9 (Version None)
Quarter: 2010Q3

REPORT INFORMATION
  Report Type: 
  Country: None (occurrence: None)
  Receive Date: 20100712
  Receipt Date: 20070315
  Transmission Date: 20110219
  Serious: No
  Sender: FDA-Public Use
  Company Number: US-PFIZER INC-2007022989

PATIENT
  Sex: Female
  Weight: 127.01 kg

DRUGS (3)
  1. CHANTIX [Suspect]
     Indication: SMOKING CESSATION THERAPY
     Dates: start: 20070305
  2. LISINOPRIL [Concomitant]
     Indication: HYPERTENSION
  3. ANTIOXIDANTS [Concomitant]

REACTIONS (4)
  - BACK DISORDER [None]
  - FATIGUE [None]
  - HYPOAESTHESIA [None]
  - MOBILITY DECREASED [None]
